FAERS Safety Report 17971425 (Version 1)
Quarter: 2020Q3

REPORT INFORMATION
  Report Type: Spontaneous
  Country: PT (occurrence: PT)
  Receive Date: 20200701
  Receipt Date: 20200701
  Transmission Date: 20201103
  Serious: Yes (Life-Threatening)
  Sender: FDA-Public Use
  Company Number: PT-BAUSCH-BL-2020-018440

PATIENT
  Age: 47 Year
  Sex: Female
  Weight: 48 kg

DRUGS (1)
  1. DEXAMETHASONE. [Suspect]
     Active Substance: DEXAMETHASONE
     Indication: ALLERGY TO ARTHROPOD BITE
     Dosage: 1 FORMULA (SINGLE DOSE); IN TOTAL
     Route: 030
     Dates: start: 20200619, end: 20200619

REACTIONS (4)
  - Tremor [Recovered/Resolved]
  - Anaphylactic reaction [Recovered/Resolved]
  - Presyncope [Recovered/Resolved]
  - Trismus [Recovered/Resolved]

NARRATIVE: CASE EVENT DATE: 20200619
